FAERS Safety Report 21116874 (Version 7)
Quarter: 2025Q1

REPORT INFORMATION
  Report Type: Other
  Country: AU (occurrence: AU)
  Receive Date: 20220722
  Receipt Date: 20250115
  Transmission Date: 20250409
  Serious: Yes (Hospitalization, Other)
  Sender: TOLMAR
  Company Number: AU-TOLMAR, INC.-22AU035510

PATIENT
  Sex: Male

DRUGS (2)
  1. ELIGARD [Suspect]
     Active Substance: LEUPROLIDE ACETATE
     Indication: Prostate cancer
     Dosage: 22.5 MILLIGRAM, Q 3 MONTH
  2. ZYTIGA [Concomitant]
     Active Substance: ABIRATERONE ACETATE
     Indication: Product used for unknown indication

REACTIONS (11)
  - Gallbladder disorder [Not Recovered/Not Resolved]
  - Pancreatitis [Unknown]
  - Heart rate abnormal [Unknown]
  - COVID-19 [Not Recovered/Not Resolved]
  - Decreased interest [Unknown]
  - Mood swings [Not Recovered/Not Resolved]
  - Hypersomnia [Unknown]
  - Herpes zoster [Unknown]
  - Hot flush [Not Recovered/Not Resolved]
  - Lethargy [Not Recovered/Not Resolved]
  - Hyperhidrosis [Not Recovered/Not Resolved]
